FAERS Safety Report 10345309 (Version 1)
Quarter: 2014Q3

REPORT INFORMATION
  Report Type: Spontaneous
  Country: GB (occurrence: None)
  Receive Date: 20140723
  Receipt Date: 20140723
  Transmission Date: 20150326
  Serious: Yes (Death)
  Sender: FDA-Public Use
  Company Number: FK201402807

PATIENT
  Age: 64 Year
  Sex: Male

DRUGS (3)
  1. FLUDARABINE (MANUFACTURER UNKNOWN) (FLUDARABINE PHOSPHATE) (FLUDARABINE PHOSPHATE) [Suspect]
     Active Substance: FLUDARABINE PHOSPHATE
     Indication: CHRONIC LYMPHOCYTIC LEUKAEMIA
     Dates: start: 2008
  2. RITUXIMAB (RITUXIMAB) [Concomitant]
     Active Substance: RITUXIMAB
  3. CYCLOPHOSPHAMIDE (MANUFACTURER UNKNOWN) (CYCLOPHOSPHAMIDE) (CYCLOPHOSPHAMIDE) [Suspect]
     Active Substance: CYCLOPHOSPHAMIDE
     Indication: CHRONIC LYMPHOCYTIC LEUKAEMIA
     Dates: start: 2008

REACTIONS (1)
  - Histiocytosis haematophagic [None]
